FAERS Safety Report 4915561-3 (Version None)
Quarter: 2006Q1

REPORT INFORMATION
  Report Type: 
  Country: None (occurrence: None)
  Receive Date: 20060113
  Receipt Date: 20050926
  Transmission Date: 20060701
  Serious: No
  Sender: FDA-Public Use
  Company Number: 2005SP003199

PATIENT
  Age: 49 Year
  Sex: Female
  Weight: 87.0906 kg

DRUGS (18)
  1. LUNESTA [Suspect]
     Indication: INSOMNIA
     Dosage: SEE IMAGE
     Route: 048
     Dates: start: 20050101, end: 20050101
  2. LUNESTA [Suspect]
     Indication: INSOMNIA
     Dosage: SEE IMAGE
     Route: 048
     Dates: start: 20050901, end: 20050101
  3. LUNESTA [Suspect]
     Indication: INSOMNIA
     Dosage: SEE IMAGE
     Route: 048
     Dates: start: 20050101
  4. NEURONTIN [Concomitant]
  5. TOPAMAX [Concomitant]
  6. LORAZEPAM [Concomitant]
  7. ZONEGRAN [Concomitant]
  8. ASPIRIN [Concomitant]
  9. LISINOPRIL [Concomitant]
  10. PLAVIX [Concomitant]
  11. CRESTOR [Concomitant]
  12. REGLAN /USA/ [Concomitant]
  13. COMPAZINE [Concomitant]
  14. SANDIMMUNE [Concomitant]
  15. NEXIUM [Concomitant]
  16. DARVOCET [Concomitant]
  17. EYE MEDICATIONS [Concomitant]
  18. DOXEPIN [Concomitant]

REACTIONS (2)
  - DAYDREAMING [None]
  - INSOMNIA [None]
